FAERS Safety Report 25644024 (Version 1)
Quarter: 2025Q3

REPORT INFORMATION
  Report Type: Report from Study
  Country: US (occurrence: US)
  Receive Date: 20250805
  Receipt Date: 20250805
  Transmission Date: 20251020
  Serious: Yes (Hospitalization)
  Sender: RANBAXY
  Company Number: US-SUN PHARMACEUTICAL INDUSTRIES LTD-2025R1-519000

PATIENT
  Sex: Female

DRUGS (3)
  1. ISOTRETINOIN [Suspect]
     Active Substance: ISOTRETINOIN
     Indication: Acne cystic
     Dosage: 30 MILLIGRAM, OD
     Route: 065
     Dates: start: 20250128
  2. ISOTRETINOIN [Suspect]
     Active Substance: ISOTRETINOIN
     Dosage: 40 MILLIGRAM, BID
     Route: 065
     Dates: start: 20250307
  3. ISOTRETINOIN [Suspect]
     Active Substance: ISOTRETINOIN
     Dosage: 30 MILLIGRAM, OD
     Route: 065
     Dates: start: 20250612

REACTIONS (5)
  - Tooth infection [Unknown]
  - Hypertriglyceridaemia [Unknown]
  - Lip dry [Unknown]
  - Epistaxis [Unknown]
  - Hypercholesterolaemia [Unknown]
